FAERS Safety Report 9916397 (Version 1)
Quarter: 2014Q1

REPORT INFORMATION
  Report Type: Spontaneous
  Country: IT (occurrence: IT)
  Receive Date: 20140221
  Receipt Date: 20140221
  Transmission Date: 20141002
  Serious: Yes (Other)
  Sender: FDA-Public Use
  Company Number: IT-TEVA-463579ISR

PATIENT
  Age: 67 Year
  Sex: Male

DRUGS (2)
  1. CARBOPLATINO TEVA [Suspect]
     Indication: LARYNGEAL CANCER
     Dosage: 370 MILLIGRAM DAILY;
     Route: 042
     Dates: start: 20130808
  2. ERBITUX [Suspect]
     Indication: LARYNGEAL CANCER
     Dosage: 375 MILLIGRAM DAILY;
     Route: 042
     Dates: start: 20130808

REACTIONS (1)
  - Petechiae [Recovered/Resolved]
